FAERS Safety Report 13773277 (Version 1)
Quarter: 2017Q3

REPORT INFORMATION
  Report Type: Spontaneous
  Country: US (occurrence: US)
  Receive Date: 20170720
  Receipt Date: 20170720
  Transmission Date: 20171127
  Serious: No
  Sender: FDA-Public Use
  Company Number: US-PFIZER INC-2017309333

PATIENT
  Sex: Female

DRUGS (1)
  1. CYKLOKAPRON [Suspect]
     Active Substance: TRANEXAMIC ACID
     Dosage: UNK

REACTIONS (1)
  - Vision blurred [Unknown]
